FAERS Safety Report 5944278-1 (Version None)
Quarter: 2008Q4

REPORT INFORMATION
  Report Type: 
  Country: None (occurrence: None)
  Receive Date: 20081106
  Receipt Date: 20081029
  Transmission Date: 20090506
  Serious: Yes (Other)
  Sender: FDA-Public Use
  Company Number: US-GILEAD-2008-0018886

PATIENT
  Age: 60 Year
  Sex: Male

DRUGS (2)
  1. HEPSERA [Suspect]
     Indication: HEPATITIS B
  2. LAMIVUDINE [Suspect]
     Indication: HEPATITIS B

REACTIONS (1)
  - NO THERAPEUTIC RESPONSE [None]
